FAERS Safety Report 25324710 (Version 1)
Quarter: 2025Q2

REPORT INFORMATION
  Report Type: Spontaneous
  Country: US (occurrence: None)
  Receive Date: 20250516
  Receipt Date: 20250516
  Transmission Date: 20250717
  Serious: Yes (Other)
  Sender: FDA-CTU
  Company Number: None

PATIENT
  Age: 69 Year
  Sex: Female
  Weight: 108.41 kg

DRUGS (1)
  1. LENVIMA [Suspect]
     Active Substance: LENVATINIB
     Indication: Endometrial cancer
     Dosage: FREQUENCY : DAILY;?
     Route: 048

REACTIONS (2)
  - Diarrhoea [None]
  - Blood pressure increased [None]

NARRATIVE: CASE EVENT DATE: 20250516
